FAERS Safety Report 20601586 (Version 1)
Quarter: 2022Q1

REPORT INFORMATION
  Report Type: Spontaneous
  Country: US (occurrence: None)
  Receive Date: 20220315
  Receipt Date: 20220315
  Transmission Date: 20220423
  Serious: Yes (Other)
  Sender: FDA-Public Use
  Company Number: None

PATIENT
  Age: 63 Year
  Sex: Female
  Weight: 70.1 kg

DRUGS (1)
  1. TRASTUZUMAB [Suspect]
     Active Substance: TRASTUZUMAB
     Indication: Endometrial cancer
     Dosage: 553MG EVERY 3 WEEKS?
     Route: 042
     Dates: start: 20220310

REACTIONS (4)
  - Infusion site extravasation [None]
  - Chills [None]
  - Infusion related reaction [None]
  - Vomiting [None]

NARRATIVE: CASE EVENT DATE: 20220310
